FAERS Safety Report 13880246 (Version 1)
Quarter: 2017Q3

REPORT INFORMATION
  Report Type: Spontaneous
  Country: GB (occurrence: GB)
  Receive Date: 20170818
  Receipt Date: 20170818
  Transmission Date: 20171127
  Serious: Yes (Other)
  Sender: FDA-Public Use
  Company Number: GB-GLAXOSMITHKLINE-GB2017127116

PATIENT
  Age: 76 Year
  Sex: Female
  Weight: 80 kg

DRUGS (11)
  1. CITALOPRAM [Concomitant]
     Active Substance: CITALOPRAM HYDROBROMIDE
     Dosage: IN THE MORNING
     Route: 065
     Dates: start: 20160727
  2. PIROXICAM. [Concomitant]
     Active Substance: PIROXICAM
     Dosage: 1 DF, TID
     Route: 065
     Dates: start: 20140212
  3. VAGIFEM [Concomitant]
     Active Substance: ESTRADIOL
     Dosage: 1 DF, TWICE IN A WEEK
     Route: 065
     Dates: start: 20130705
  4. ISOSORBIDE MONONITRATE. [Concomitant]
     Active Substance: ISOSORBIDE MONONITRATE
     Dosage: AT 8AM AND 2PM
     Route: 065
     Dates: start: 20161111
  5. LOPERAMIDE [Concomitant]
     Active Substance: LOPERAMIDE
     Dosage: AFTER EACH LOOSE BOWEL MOTION
     Route: 065
     Dates: start: 20170525, end: 20170601
  6. LOSARTAN. [Concomitant]
     Active Substance: LOSARTAN
     Dosage: 1 DF, QD
     Route: 065
     Dates: start: 20170227, end: 20170512
  7. MOMETASONE [Concomitant]
     Active Substance: MOMETASONE
     Dosage: UNK
     Route: 065
     Dates: start: 20030113, end: 20170512
  8. OMEPRAZOLE. [Concomitant]
     Active Substance: OMEPRAZOLE
     Dosage: 1 DF, BID
     Route: 065
     Dates: start: 20170512
  9. AVAMYS [Suspect]
     Active Substance: FLUTICASONE FUROATE
     Indication: PRODUCT USED FOR UNKNOWN INDICATION
     Dosage: 1 DF, UNK
     Route: 045
     Dates: start: 20170704
  10. LORATADINE. [Concomitant]
     Active Substance: LORATADINE
     Indication: HYPERSENSITIVITY
     Dosage: TAKE ONE DAILY AS REQUIRED
     Route: 065
     Dates: start: 20170804
  11. LANSOPRAZOLE. [Concomitant]
     Active Substance: LANSOPRAZOLE
     Dosage: 1 DF, QD
     Route: 065
     Dates: start: 20161128, end: 20170512

REACTIONS (4)
  - Cough [Unknown]
  - Wheezing [Recovered/Resolved]
  - Asthma [Unknown]
  - Hypersensitivity [Unknown]

NARRATIVE: CASE EVENT DATE: 20170804
